FAERS Safety Report 5047719-X (Version None)
Quarter: 2006Q2

REPORT INFORMATION
  Report Type: 
  Country: None (occurrence: None)
  Receive Date: 20060601
  Receipt Date: 20060308
  Transmission Date: 20061013
  Serious: No
  Sender: FDA-Public Use
  Company Number: 2006PV009868

PATIENT
  Age: 43 Year
  Sex: Female
  Weight: 75.7507 kg

DRUGS (10)
  1. BYETTA [Suspect]
     Indication: DIABETES MELLITUS NON-INSULIN-DEPENDENT
     Dosage: SEE IMAGE
     Route: 058
     Dates: start: 20051101, end: 20051201
  2. BYETTA [Suspect]
     Indication: DIABETES MELLITUS NON-INSULIN-DEPENDENT
     Dosage: SEE IMAGE
     Route: 058
     Dates: start: 20051201
  3. METFORMIN [Concomitant]
  4. ACTOS [Concomitant]
  5. LIPITOR [Concomitant]
  6. LISINOPRIL WITH HCTZ [Concomitant]
  7. CYMBALTA [Concomitant]
  8. INDERAL LA [Concomitant]
  9. ASPIRIN [Concomitant]
  10. ... [Concomitant]

REACTIONS (5)
  - DECREASED APPETITE [None]
  - DYSPNOEA [None]
  - FLATULENCE [None]
  - NAUSEA [None]
  - NON-CARDIAC CHEST PAIN [None]
